FAERS Safety Report 6542689-7 (Version None)
Quarter: 2010Q1

REPORT INFORMATION
  Report Type: 
  Country: None (occurrence: None)
  Receive Date: 20100119
  Receipt Date: 20100112
  Transmission Date: 20100710
  Serious: Yes (Other)
  Sender: FDA-Public Use
  Company Number: JP-MERCK-0912USA02517

PATIENT

DRUGS (1)
  1. PEPCID RPD [Suspect]
     Route: 048

REACTIONS (1)
  - RHABDOMYOLYSIS [None]
